FAERS Safety Report 11855891 (Version 1)
Quarter: 2015Q4

REPORT INFORMATION
  Report Type: Spontaneous
  Country: US (occurrence: US)
  Receive Date: 20151221
  Receipt Date: 20151221
  Transmission Date: 20160305
  Serious: Yes (Hospitalization)
  Sender: FDA-Public Use
  Company Number: US-NOVOPROD-474055

PATIENT
  Age: 62 Year
  Sex: Male
  Weight: 77.98 kg

DRUGS (1)
  1. NOVOLOG [Suspect]
     Active Substance: INSULIN ASPART
     Indication: TYPE 2 DIABETES MELLITUS
     Dosage: SLIDING SCALE WITH BREAKFAST AND DINNER
     Route: 058
     Dates: start: 2015

REACTIONS (12)
  - Confusional state [Recovered/Resolved]
  - Unevaluable event [Recovered/Resolved]
  - Pain in extremity [Unknown]
  - Tremor [Unknown]
  - Vomiting [Recovered/Resolved]
  - Pain [Recovered/Resolved]
  - Blood glucose fluctuation [Recovered/Resolved]
  - Dysstasia [Recovered/Resolved]
  - Dehydration [Recovered/Resolved]
  - Visual acuity reduced [Unknown]
  - Feeding disorder [Recovered/Resolved]
  - Abasia [Recovered/Resolved]

NARRATIVE: CASE EVENT DATE: 2015
